FAERS Safety Report 10393799 (Version 1)
Quarter: 2014Q3

REPORT INFORMATION
  Report Type: Report from Study
  Country: BR (occurrence: BR)
  Receive Date: 20140819
  Receipt Date: 20140819
  Transmission Date: 20150326
  Serious: Yes (Hospitalization, Other)
  Sender: FDA-Public Use
  Company Number: BR-BAYER-2014-121202

PATIENT
  Age: 22 Year
  Sex: Female

DRUGS (1)
  1. BETAFERON [Suspect]
     Active Substance: INTERFERON BETA-1B
     Indication: SECONDARY PROGRESSIVE MULTIPLE SCLEROSIS
     Dosage: 1 ML, QOD
     Route: 058
     Dates: start: 201305, end: 201401

REACTIONS (9)
  - Skin discolouration [Recovered/Resolved]
  - Dyspnoea [Recovering/Resolving]
  - Multiple sclerosis [Recovering/Resolving]
  - Rash erythematous [Recovered/Resolved]
  - Injection site hypersensitivity [Recovered/Resolved]
  - Asthenia [Recovering/Resolving]
  - Multiple sclerosis relapse [Recovering/Resolving]
  - Heart rate decreased [Recovering/Resolving]
  - Injection site discolouration [Recovered/Resolved]

NARRATIVE: CASE EVENT DATE: 201306
